FAERS Safety Report 7383872-0 (Version None)
Quarter: 2011Q1

REPORT INFORMATION
  Report Type: 
  Country: None (occurrence: None)
  Receive Date: 20110330
  Receipt Date: 20110324
  Transmission Date: 20110831
  Serious: Yes (Other)
  Sender: FDA-Public Use
  Company Number: US-ABBOTT-11P-163-0714200-00

PATIENT
  Age: 42 Year
  Sex: Female
  Weight: 102.15 kg

DRUGS (2)
  1. HUMIRA [Suspect]
     Indication: CROHN'S DISEASE
     Dates: start: 20091101, end: 20110101
  2. HUMIRA [Suspect]

REACTIONS (7)
  - BRONCHITIS [None]
  - SINUSITIS [None]
  - MIDDLE EAR EFFUSION [None]
  - NASAL CONGESTION [None]
  - DYSPNOEA [None]
  - OVARIAN CYST [None]
  - COUGH [None]
